FAERS Safety Report 8861344 (Version 1)
Quarter: 2012Q4

REPORT INFORMATION
  Report Type: 
  Country: US (occurrence: None)
  Receive Date: 20121022
  Receipt Date: 20121022
  Transmission Date: 20130627
  Serious: Yes (Death, Hospitalization)
  Sender: FDA-Public Use
  Company Number: 2012MA012251

PATIENT
  Age: 51 Year
  Sex: Female

DRUGS (4)
  1. CLONAZEPAM [Suspect]
     Dates: end: 201008
  2. MELATONIN [Concomitant]
  3. CARISOPRODOL [Concomitant]
  4. ATIVAN [Concomitant]

REACTIONS (19)
  - Unresponsive to stimuli [None]
  - Heart rate decreased [None]
  - Aspiration [None]
  - Body temperature increased [None]
  - Pneumonitis [None]
  - Cardio-respiratory arrest [None]
  - Pulmonary oedema [None]
  - Pupils unequal [None]
  - Urinary bladder haemorrhage [None]
  - Urinary bladder rupture [None]
  - Bronchopneumonia [None]
  - Hepatic fibrosis [None]
  - Toxicologic test abnormal [None]
  - Urine abnormality [None]
  - Urine bilirubin increased [None]
  - Glucose urine present [None]
  - Protein urine present [None]
  - Urinary casts present [None]
  - Urine ketone body present [None]
